FAERS Safety Report 12673506 (Version 1)
Quarter: 2016Q3

REPORT INFORMATION
  Report Type: Spontaneous
  Country: US (occurrence: US)
  Receive Date: 20160822
  Receipt Date: 20160822
  Transmission Date: 20161109
  Serious: No
  Sender: FDA-Public Use
  Company Number: US-CELGENEUS-USA-2016082295

PATIENT
  Age: 41 Year
  Sex: Female
  Weight: 86.26 kg

DRUGS (2)
  1. OTEZLA [Suspect]
     Active Substance: APREMILAST
     Indication: PSORIATIC ARTHROPATHY
     Route: 048
     Dates: start: 201510, end: 20160422
  2. TOPICAL STEROID [Concomitant]
     Indication: PSORIATIC ARTHROPATHY
     Route: 065

REACTIONS (4)
  - Headache [Not Recovered/Not Resolved]
  - Expired product administered [Recovered/Resolved]
  - Pneumonia [Unknown]
  - Respiratory tract congestion [Not Recovered/Not Resolved]

NARRATIVE: CASE EVENT DATE: 201608
